FAERS Safety Report 7339621-5 (Version None)
Quarter: 2011Q1

REPORT INFORMATION
  Report Type: 
  Country: None (occurrence: None)
  Receive Date: 20110308
  Receipt Date: 20110303
  Transmission Date: 20110831
  Serious: Yes (Other)
  Sender: FDA-Public Use
  Company Number: JP-MERCK-1103USA00903

PATIENT
  Age: 82 Year
  Sex: Female

DRUGS (2)
  1. FOSAMAX [Suspect]
     Indication: OSTEOPOROSIS
     Route: 048
     Dates: start: 20080514
  2. URSO 250 [Concomitant]
     Indication: BILIARY CIRRHOSIS PRIMARY
     Dosage: DAILY DOSAGE UNKNOWN
     Route: 048

REACTIONS (1)
  - BREAST CANCER [None]
